FAERS Safety Report 4550033-X (Version None)
Quarter: 2005Q1

REPORT INFORMATION
  Report Type: 
  Country: None (occurrence: None)
  Receive Date: 20050110
  Receipt Date: 20041227
  Transmission Date: 20050727
  Serious: Yes (Other)
  Sender: FDA-Public Use
  Company Number: 2004119757

PATIENT
  Age: 74 Year
  Sex: Female
  Weight: 95.2554 kg

DRUGS (14)
  1. CELEBREX [Suspect]
     Indication: ARTHRITIS
     Dosage: UNKNOWN
     Route: 065
     Dates: start: 20010501
  2. HYDROXYZINE EMBONATE (HYDROXYZINE EMBONATE) [Suspect]
     Indication: ILL-DEFINED DISORDER
     Dosage: UNKNOWN
     Route: 065
     Dates: start: 20031101
  3. TOLTERODINE TARTRATE [Suspect]
     Indication: URINE ABNORMALITY
     Dosage: UNKNOWN
     Route: 065
     Dates: start: 20040101
  4. PRAVASTATIN SODIUM [Concomitant]
  5. POTASSIUM CHLORIDE [Concomitant]
  6. FEXOFENADINE HYDROCHLORIDE (FEXOFENDADINE HYDROCHLORIDE) [Concomitant]
  7. ISOXSUPRINE HYDROCHLORIDE (ISOXSUPRINE HYDROCHLORIDE) [Concomitant]
  8. ALLOPURINOL [Concomitant]
  9. CLOPIDOGREL BISULFATE [Concomitant]
  10. ORPHENADRINE CITRATE [Concomitant]
  11. RANITIDINE HYDROCHLORIDE [Concomitant]
  12. LANSOPRAZOLE [Concomitant]
  13. ATENOLOL [Concomitant]
  14. PERI-COLACE [Concomitant]

REACTIONS (3)
  - BREAST CANCER FEMALE [None]
  - URINARY INCONTINENCE [None]
  - URINARY TRACT INFECTION [None]
